FAERS Safety Report 16934702 (Version 1)
Quarter: 2019Q4

REPORT INFORMATION
  Report Type: Spontaneous
  Country: US (occurrence: US)
  Receive Date: 20191018
  Receipt Date: 20191018
  Transmission Date: 20200122
  Serious: No
  Sender: FDA-Public Use
  Company Number: US-TEVA-2019-US-1123228

PATIENT
  Sex: Female
  Weight: 57 kg

DRUGS (3)
  1. ALBUTEROL SULFATE HFA [Suspect]
     Active Substance: ALBUTEROL SULFATE
     Indication: ASTHMA
     Route: 065
     Dates: start: 201908
  2. PROAIR HFA [Suspect]
     Active Substance: ALBUTEROL SULFATE
     Indication: ASTHMA
     Dosage: 6 TIMES A DAY AS NEEDED
     Route: 065
     Dates: start: 2019
  3. QVAR REDIHALER [Suspect]
     Active Substance: BECLOMETHASONE DIPROPIONATE
     Indication: ASTHMA
     Dosage: 1 PUFF IN THE MORNING AND 1 PUFF AT NIGHT
     Route: 065

REACTIONS (2)
  - Drug delivery system malfunction [Unknown]
  - Throat irritation [Unknown]
